FAERS Safety Report 4854497-3 (Version None)
Quarter: 2005Q4

REPORT INFORMATION
  Report Type: 
  Country: None (occurrence: None)
  Receive Date: 20051213
  Receipt Date: 20051201
  Transmission Date: 20060501
  Serious: Yes (Life-Threatening)
  Sender: FDA-Public Use
  Company Number: MEDI-0003602

PATIENT
  Age: 63 Year
  Sex: Male
  Weight: 93 kg

DRUGS (14)
  1. ETHYOL [Suspect]
     Indication: RADIOTHERAPY
     Dosage: 400 MG, QD, INTRAVENOUS
     Route: 042
     Dates: start: 20050524, end: 20050701
  2. RADIATION THERAPY [Concomitant]
  3. ESIDRIX [Concomitant]
  4. TENORDATE (NIFEDIPINE, ATENOLOL) [Concomitant]
  5. ZOFRAN [Concomitant]
  6. METHYLPREDNISOLONE HEMISUCCINATE (METHYLPREDNISOLONE HEMISUCCIANTE) [Concomitant]
  7. ALLOPURINOL [Concomitant]
  8. COLCHIMAX (COLCHICINE, DICYCLOVERINE HYDROCHLORIDE) [Concomitant]
  9. DI-ANTALVIC (PARACETAMOL, DEXTROPROPOXYPHENE HYDROCHLORIDE) [Concomitant]
  10. SOLUPRED (PREDNISOLONE SODIUM SULFOBENZOATE) [Concomitant]
  11. AUGMENTIN (CLAVULANATE POTASSIUM, AMOXICILLIN TRIHYDRATE) [Concomitant]
  12. XYLOCAINE [Concomitant]
  13. ASPEGIC 1000 [Concomitant]
  14. FLUCONAZOLE [Concomitant]

REACTIONS (3)
  - CONJUNCTIVITIS [None]
  - HYPOALBUMINAEMIA [None]
  - TOXIC SKIN ERUPTION [None]
